FAERS Safety Report 25542129 (Version 1)
Quarter: 2025Q3

REPORT INFORMATION
  Report Type: Report from Study
  Country: IN (occurrence: IN)
  Receive Date: 20250711
  Receipt Date: 20250711
  Transmission Date: 20251020
  Serious: Yes (Other)
  Sender: ROCHE
  Company Number: IN-002147023-NVSC2025IN108859

PATIENT
  Age: 56 Year
  Sex: Female

DRUGS (1)
  1. RANIBIZUMAB [Suspect]
     Active Substance: RANIBIZUMAB
     Indication: Age-related macular degeneration
     Route: 050
     Dates: start: 20250104

REACTIONS (4)
  - Subretinal fibrosis [Unknown]
  - Choroidal neovascularisation [Recovering/Resolving]
  - Pathologic myopia [Unknown]
  - Maculopathy [Unknown]
